FAERS Safety Report 4680708-3 (Version None)
Quarter: 2005Q2

REPORT INFORMATION
  Report Type: 
  Country: None (occurrence: None)
  Receive Date: 20050601
  Receipt Date: 20050523
  Transmission Date: 20051028
  Serious: Yes (Other)
  Sender: FDA-Public Use
  Company Number: 2005075603

PATIENT
  Age: 75 Year
  Sex: Male

DRUGS (3)
  1. DOXAZOSIN (DOXAZOSIN) [Suspect]
     Indication: ILL-DEFINED DISORDER
     Dosage: 4 MG (4 MG, DAILY INTERVAL: EVERY  DAY), ORAL
     Route: 048
     Dates: start: 20050314
  2. DOXAZOSIN (DOXAZOSIN) [Suspect]
     Indication: ILL-DEFINED DISORDER
     Dosage: 4 MG (4 MG, DAILY INTERVAL: EVERY  DAY), ORAL
     Route: 048
     Dates: start: 20050331
  3. PREDNISONE [Concomitant]

REACTIONS (3)
  - BLISTER [None]
  - PEMPHIGOID [None]
  - RASH [None]
